FAERS Safety Report 13647671 (Version 2)
Quarter: 2017Q2

REPORT INFORMATION
  Report Type: Spontaneous
  Country: IR (occurrence: IR)
  Receive Date: 20170613
  Receipt Date: 20170613
  Transmission Date: 20170830
  Serious: Yes (Death, Other)
  Sender: FDA-Public Use
  Company Number: IR-009507513-1705IRN013906

PATIENT
  Age: 70 Year
  Sex: Male

DRUGS (6)
  1. IMIPENEM AND CILASTATIN [Suspect]
     Active Substance: CILASTATIN SODIUM\IMIPENEM
     Indication: ESCHERICHIA INFECTION
     Dosage: UNK
  2. CEFTRIAXONE. [Concomitant]
     Active Substance: CEFTRIAXONE
     Indication: NOSOCOMIAL INFECTION
  3. SULFAMETHOXAZOLE (+) TRIMETHOPRIM [Concomitant]
     Active Substance: SULFAMETHOXAZOLE\TRIMETHOPRIM
     Indication: NOSOCOMIAL INFECTION
  4. AZITHROMYCIN ANHYDROUS. [Concomitant]
     Active Substance: AZITHROMYCIN ANHYDROUS
     Indication: NOSOCOMIAL INFECTION
  5. IMIPENEM AND CILASTATIN [Suspect]
     Active Substance: CILASTATIN SODIUM\IMIPENEM
     Indication: NOSOCOMIAL INFECTION
  6. CIPROFLOXACIN. [Suspect]
     Active Substance: CIPROFLOXACIN
     Indication: NOSOCOMIAL INFECTION

REACTIONS (2)
  - Therapy non-responder [Fatal]
  - Pathogen resistance [Unknown]
